FAERS Safety Report 5462941-6 (Version None)
Quarter: 2007Q3

REPORT INFORMATION
  Report Type: 
  Country: None (occurrence: None)
  Receive Date: 20070920
  Receipt Date: 20070919
  Transmission Date: 20080115
  Serious: Yes (Hospitalization)
  Sender: FDA-Public Use
  Company Number: IT-BRISTOL-MYERS SQUIBB COMPANY-13913108

PATIENT
  Age: 17 Year
  Sex: Female

DRUGS (4)
  1. PROCEF TABS 500 MG [Suspect]
     Indication: PHARYNGOTONSILLITIS
     Route: 048
     Dates: start: 20070907, end: 20070908
  2. MUCOSOLVAN [Suspect]
     Indication: PHARYNGOTONSILLITIS
     Route: 048
     Dates: start: 20070907, end: 20070909
  3. BENTELAN [Concomitant]
  4. EUTIROX [Concomitant]

REACTIONS (3)
  - PRURITUS [None]
  - RASH MACULO-PAPULAR [None]
  - URTICARIA [None]
